FAERS Safety Report 17254924 (Version 3)
Quarter: 2020Q2

REPORT INFORMATION
  Report Type: Report from Study
  Country: AT (occurrence: AT)
  Receive Date: 20200109
  Receipt Date: 20200612
  Transmission Date: 20200713
  Serious: Yes (Hospitalization)
  Sender: FDA-Public Use
  Company Number: AT-TAKEDA-2020TUS001640

PATIENT
  Sex: Female

DRUGS (5)
  1. METHOTREXATE (METHOTREXATE SODIUM) [Concomitant]
     Active Substance: METHOTREXATE SODIUM
     Dosage: UNK
  2. VEDOLIZUMAB [Suspect]
     Active Substance: VEDOLIZUMAB
     Indication: COLITIS ULCERATIVE
     Dosage: UNK
     Route: 042
     Dates: start: 20170712, end: 20180801
  3. MESAGRAN [Concomitant]
     Active Substance: MESALAMINE
     Dosage: UNK
  4. CEFUROXIM                          /00454602/ [Concomitant]
     Active Substance: CEFUROXIME
     Dosage: UNK
  5. ANAEROBEX [Concomitant]
     Active Substance: METRONIDAZOLE
     Dosage: UNK

REACTIONS (1)
  - Colitis ulcerative [Recovered/Resolved]

NARRATIVE: CASE EVENT DATE: 20191210
